FAERS Safety Report 24318190 (Version 1)
Quarter: 2024Q3

REPORT INFORMATION
  Report Type: Report from Study
  Country: IT (occurrence: IT)
  Receive Date: 20240913
  Receipt Date: 20240913
  Transmission Date: 20241017
  Serious: No
  Sender: KARYOPHARM THERAPEUTICS
  Company Number: IT-KARYOPHARM-2024KPT001435

PATIENT
  Age: 85 Year
  Sex: Female

DRUGS (11)
  1. SELINEXOR [Suspect]
     Active Substance: SELINEXOR
     Indication: Plasma cell myeloma refractory
     Dosage: 20 MG, QD
     Route: 048
     Dates: start: 20240704, end: 202407
  2. SELINEXOR [Suspect]
     Active Substance: SELINEXOR
     Dosage: 20 MG, QD
     Route: 048
     Dates: start: 20240716, end: 20240801
  3. ALLOPURINOL [Concomitant]
     Active Substance: ALLOPURINOL
  4. ESOMEPRAZOLE [Concomitant]
     Active Substance: ESOMEPRAZOLE
     Dosage: 40 MG
  5. GABAPENTIN [Concomitant]
     Active Substance: GABAPENTIN
  6. VALPROATE SODIUM [Concomitant]
     Active Substance: VALPROATE SODIUM
  7. FUROSEMIDE [Concomitant]
     Active Substance: FUROSEMIDE
  8. EDOXABAN [Concomitant]
     Active Substance: EDOXABAN
  9. CORDARONE [Concomitant]
     Active Substance: AMIODARONE HYDROCHLORIDE
  10. CHOLECALCIFEROL [Concomitant]
     Active Substance: CHOLECALCIFEROL
  11. ARANESP [Concomitant]
     Active Substance: DARBEPOETIN ALFA

REACTIONS (6)
  - Swelling face [Recovered/Resolved]
  - Visual impairment [Recovered/Resolved]
  - Diarrhoea [Recovered/Resolved]
  - Nausea [Recovered/Resolved]
  - Hyponatraemia [Recovered/Resolved]
  - Confusional state [Recovered/Resolved]

NARRATIVE: CASE EVENT DATE: 20240706
